FAERS Safety Report 10539503 (Version 1)
Quarter: 2014Q4

REPORT INFORMATION
  Report Type: Spontaneous
  Country: FR (occurrence: FR)
  Receive Date: 20141023
  Receipt Date: 20141023
  Transmission Date: 20150529
  Serious: Yes (Hospitalization)
  Sender: FDA-Public Use
  Company Number: FR-AMGEN-FRASP2014080404

PATIENT
  Age: 58 Year
  Sex: Female

DRUGS (5)
  1. NOVATREX                           /00113801/ [Suspect]
     Active Substance: METHOTREXATE SODIUM
     Indication: LARGE GRANULAR LYMPHOCYTOSIS
     Dosage: 10 MG, QWK
     Route: 048
     Dates: start: 20141008
  2. NPLATE [Suspect]
     Active Substance: ROMIPLOSTIM
     Indication: IMMUNE THROMBOCYTOPENIC PURPURA
     Dosage: 250 MUG, UNK
     Route: 058
     Dates: start: 20141004, end: 20141004
  3. PRIVIGEN [Suspect]
     Active Substance: HUMAN IMMUNOGLOBULIN G
     Indication: IMMUNE THROMBOCYTOPENIC PURPURA
     Dosage: 20 G, UNK
     Route: 065
     Dates: start: 20141003, end: 20141004
  4. PIPERACILLINE / TAZOBACTAM MYLAN [Suspect]
     Active Substance: PIPERACILLIN SODIUM\TAZOBACTAM SODIUM
     Indication: FEBRILE NEUTROPENIA
     Dosage: 12 G, QD
     Route: 042
     Dates: start: 20141003, end: 20141010
  5. AMIKACIN [Suspect]
     Active Substance: AMIKACIN
     Indication: FEBRILE NEUTROPENIA
     Dosage: 1 G, QD
     Route: 065
     Dates: start: 20141006, end: 20141006

REACTIONS (1)
  - Hepatitis [Recovering/Resolving]

NARRATIVE: CASE EVENT DATE: 20141010
